FAERS Safety Report 7817250-4 (Version None)
Quarter: 2011Q4

REPORT INFORMATION
  Report Type: 
  Country: None (occurrence: None)
  Receive Date: 20111017
  Receipt Date: 20111010
  Transmission Date: 20120403
  Serious: Yes (Other)
  Sender: FDA-Public Use
  Company Number: PHHY2011MX89895

PATIENT
  Sex: Male

DRUGS (3)
  1. FUROSEMIDE [Concomitant]
  2. RASILEZ [Suspect]
     Indication: HYPERTENSION
     Dosage: 1 DF, DAILY
  3. PIOGLITAZONE [Concomitant]
     Indication: DIABETES MELLITUS
     Dosage: 1 DF,
     Dates: start: 20110701

REACTIONS (1)
  - HERPES VIRUS INFECTION [None]
